FAERS Safety Report 9737207 (Version 2)
Quarter: 2014Q1

REPORT INFORMATION
  Report Type: Report from Study
  Country: US (occurrence: US)
  Receive Date: 20131206
  Receipt Date: 20140328
  Transmission Date: 20141002
  Serious: Yes (Hospitalization, Other)
  Sender: FDA-Public Use
  Company Number: US-ABBVIE-13P-163-1174563-00

PATIENT
  Age: 74 Year
  Sex: Male

DRUGS (13)
  1. HUMIRA [Suspect]
     Indication: PSORIASIS
     Dates: start: 201207, end: 201212
  2. HUMIRA [Suspect]
     Dates: start: 201310
  3. HUMIRA [Suspect]
  4. SIMVASTATIN [Suspect]
     Indication: BLOOD CHOLESTEROL INCREASED
  5. FLUOCINONIDE [Concomitant]
     Indication: PRODUCT USED FOR UNKNOWN INDICATION
     Dosage: VARIES DAILY BETWEEN CREAM AND SOLUTION
  6. CLOBETASOL PROPIONATE [Concomitant]
     Indication: PRODUCT USED FOR UNKNOWN INDICATION
  7. ATARAX [Concomitant]
     Indication: PRURITUS
     Dosage: AT NIGHT
  8. LISINOPRIL [Concomitant]
     Indication: HYPERTENSION
  9. METOPROLOL TARTRATE [Concomitant]
     Indication: HYPERTENSION
  10. VITAMIN D3 [Concomitant]
     Indication: PRODUCT USED FOR UNKNOWN INDICATION
  11. ASPIRIN [Concomitant]
     Indication: PRODUCT USED FOR UNKNOWN INDICATION
  12. FLUTICASONE CREAM 0.05% [Concomitant]
     Indication: PRODUCT USED FOR UNKNOWN INDICATION
     Dosage: A SMALL AMOUNT ONCE DAILY
  13. MULTIVITAMINS [Concomitant]
     Indication: PRODUCT USED FOR UNKNOWN INDICATION
     Dosage: 1 TABLET ONCE DAILY

REACTIONS (31)
  - Asthenia [Recovered/Resolved]
  - Asthenia [Recovered/Resolved]
  - Renal failure acute [Unknown]
  - Confusional state [Recovered/Resolved]
  - Stress [Unknown]
  - Ischaemia [Unknown]
  - Blood electrolytes decreased [Recovered/Resolved]
  - Coronary artery disease [Unknown]
  - Angina pectoris [Unknown]
  - Blood cholesterol increased [Unknown]
  - Cardiovascular disorder [Unknown]
  - Confusional state [Recovered/Resolved]
  - Chest pain [Unknown]
  - Drug interaction [Unknown]
  - Eczema [Unknown]
  - Pruritus [Unknown]
  - Papule [Unknown]
  - Skin exfoliation [Unknown]
  - Skin fissures [Unknown]
  - Eczema [Unknown]
  - Hyponatraemia [Unknown]
  - Hypokalaemia [Unknown]
  - Hypomagnesaemia [Unknown]
  - Psoriasis [Unknown]
  - Drug ineffective [Not Recovered/Not Resolved]
  - Psoriasis [Not Recovered/Not Resolved]
  - Skin mass [Unknown]
  - Skin mass [Unknown]
  - Psoriasis [Unknown]
  - Psoriasis [Unknown]
  - Psoriasis [Unknown]
